FAERS Safety Report 7077096-4 (Version None)
Quarter: 2010Q4

REPORT INFORMATION
  Report Type: 
  Country: None (occurrence: None)
  Receive Date: 20101101
  Receipt Date: 20101023
  Transmission Date: 20110411
  Serious: Yes (Other)
  Sender: FDA-Public Use
  Company Number: AU-ROCHE-736321

PATIENT
  Age: 18 Year
  Sex: Male

DRUGS (1)
  1. ISOTRETINOIN [Suspect]
     Route: 065
     Dates: start: 19850101

REACTIONS (4)
  - BIPOLAR DISORDER [None]
  - DEPRESSION [None]
  - MENTAL DISORDER [None]
  - SUICIDAL IDEATION [None]
